FAERS Safety Report 6343245-6 (Version None)
Quarter: 2009Q3

REPORT INFORMATION
  Report Type: 
  Country: None (occurrence: None)
  Receive Date: 20090908
  Receipt Date: 20090825
  Transmission Date: 20100115
  Serious: Yes (Other)
  Sender: FDA-Public Use
  Company Number: PHHY2009GB24325

PATIENT
  Sex: Female

DRUGS (6)
  1. CLOZARIL [Suspect]
     Indication: SCHIZOPHRENIA
     Dosage: UNK
     Dates: start: 20020613
  2. CLOZARIL [Suspect]
     Dosage: 100 MG, UNK
     Route: 048
  3. FERROUS SULFATE TAB [Concomitant]
     Dosage: 600 MG, UNK
     Route: 048
  4. FLUOXETINE [Concomitant]
     Dosage: 40 MG, UNK
     Route: 048
  5. LAMOTRIGINE [Concomitant]
     Dosage: 50 MG, UNK
     Route: 048
  6. VITAMIN B COMPLEX CAP [Concomitant]
     Dosage: 1 TABLET
     Route: 048

REACTIONS (5)
  - FULL BLOOD COUNT INCREASED [None]
  - INFLUENZA LIKE ILLNESS [None]
  - MALAISE [None]
  - MASS [None]
  - NECK MASS [None]
